FAERS Safety Report 5311533-8 (Version None)
Quarter: 2007Q2

REPORT INFORMATION
  Report Type: 
  Country: None (occurrence: None)
  Receive Date: 20070430
  Receipt Date: 20070405
  Transmission Date: 20071010
  Serious: Yes (Other)
  Sender: FDA-Public Use
  Company Number: FR-GLAXOSMITHKLINE-B0466456A

PATIENT
  Age: 68 Year
  Sex: Male
  Weight: 81 kg

DRUGS (4)
  1. AVANDAMET [Suspect]
     Dosage: 2TAB TWICE PER DAY
     Route: 048
     Dates: start: 20050701, end: 20051208
  2. ANGIOTENSIN-CONVERTING ENZYME INHIBITOR [Concomitant]
     Route: 065
  3. ANGIOTENSIN II ANTAGONIST [Concomitant]
     Route: 065
  4. UNSPECIFIED MEDICATION [Concomitant]
     Route: 065

REACTIONS (2)
  - CARDIAC FAILURE [None]
  - CHEST PAIN [None]
